FAERS Safety Report 18474525 (Version 3)
Quarter: 2021Q1

REPORT INFORMATION
  Report Type: Spontaneous
  Country: DK (occurrence: DK)
  Receive Date: 20201106
  Receipt Date: 20210315
  Transmission Date: 20210419
  Serious: Yes (Other)
  Sender: FDA-Public Use
  Company Number: DK-BAYER-2020-232921

PATIENT
  Weight: 95 kg

DRUGS (3)
  1. XOFIGO [Suspect]
     Active Substance: RADIUM RA-223 DICHLORIDE
     Indication: METASTASES TO BONE
     Dosage: UNK
     Dates: start: 20200819, end: 20200819
  2. XOFIGO [Suspect]
     Active Substance: RADIUM RA-223 DICHLORIDE
     Indication: METASTASES TO BONE
     Dosage: UNK
     Dates: start: 20200916, end: 20200916
  3. XOFIGO [Suspect]
     Active Substance: RADIUM RA-223 DICHLORIDE
     Indication: METASTASES TO BONE
     Dosage: UNK
     Dates: start: 20200722, end: 20200722

REACTIONS (4)
  - Pain [None]
  - Spinal decompression [None]
  - General physical health deterioration [None]
  - Metastases to bone [None]
